FAERS Safety Report 6409131-8 (Version None)
Quarter: 2009Q4

REPORT INFORMATION
  Report Type: 
  Country: None (occurrence: None)
  Receive Date: 20091021
  Receipt Date: 20091008
  Transmission Date: 20100525
  Serious: Yes (Other)
  Sender: FDA-Public Use
  Company Number: PHEH2009US13409

PATIENT
  Sex: Male

DRUGS (1)
  1. EXJADE [Suspect]
     Dosage: 500 MG, QD
     Route: 048
     Dates: start: 20071026

REACTIONS (4)
  - MALAISE [None]
  - SERUM FERRITIN INCREASED [None]
  - SPLEEN DISORDER [None]
  - TREATMENT NONCOMPLIANCE [None]
